FAERS Safety Report 5518919-7 (Version None)
Quarter: 2007Q4

REPORT INFORMATION
  Report Type: 
  Country: None (occurrence: None)
  Receive Date: 20071114
  Receipt Date: 20071114
  Transmission Date: 20080405
  Serious: Yes (Life-Threatening)
  Sender: FDA-Public Use
  Company Number: None

PATIENT
  Age: 85 Year
  Sex: Female
  Weight: 52.3 kg

DRUGS (1)
  1. MIRTAZAPINE [Suspect]
     Dosage: 30MG QHS PO
     Route: 048
     Dates: start: 20070403, end: 20070518

REACTIONS (1)
  - NEUTROPENIA [None]
